FAERS Safety Report 13067608 (Version 2)
Quarter: 2017Q1

REPORT INFORMATION
  Report Type: Spontaneous
  Country: DE (occurrence: DE)
  Receive Date: 20161228
  Receipt Date: 20170103
  Transmission Date: 20170428
  Serious: Yes (Other)
  Sender: FDA-Public Use
  Company Number: DE-SUN PHARMACEUTICAL INDUSTRIES LTD-2016R1-130193

PATIENT
  Age: 66 Year
  Sex: Male
  Weight: 70 kg

DRUGS (1)
  1. AMOXICILLIN. [Suspect]
     Active Substance: AMOXICILLIN
     Indication: TOOTH ABSCESS
     Dosage: 1000 MG, TID
     Route: 048
     Dates: start: 20161130

REACTIONS (3)
  - Hypersensitivity vasculitis [Recovering/Resolving]
  - Flushing [Recovering/Resolving]
  - Pruritus [Recovering/Resolving]

NARRATIVE: CASE EVENT DATE: 20161209
